FAERS Safety Report 23574856 (Version 2)
Quarter: 2024Q1

REPORT INFORMATION
  Report Type: Other
  Country: DE (occurrence: DE)
  Receive Date: 20240228
  Receipt Date: 20240306
  Transmission Date: 20240410
  Serious: Yes (Hospitalization, Disabling, Other)
  Sender: FDA-Public Use
  Company Number: CH-MACLEODS PHARMACEUTICALS US LTD-MAC2024046003

PATIENT

DRUGS (86)
  1. VALSARTAN [Suspect]
     Active Substance: VALSARTAN
     Indication: Hypertension
     Dosage: 320 MILLIGRAM, QD (IN THE MORNING)
     Route: 065
  2. VALSARTAN [Suspect]
     Active Substance: VALSARTAN
     Dosage: UNK UNK, BID, (ONCE IN THE MORNING, ONCE IN THE EVENING (1-0-1))
     Route: 065
  3. SACUBITRIL\VALSARTAN [Suspect]
     Active Substance: SACUBITRIL\VALSARTAN
     Indication: Myocarditis
     Dosage: 100 MILLIGRAM, BID (49/51 MG, MORNING AND EVENING)
     Route: 065
  4. SACUBITRIL\VALSARTAN [Suspect]
     Active Substance: SACUBITRIL\VALSARTAN
     Indication: Dilated cardiomyopathy
     Dosage: 200 MILLIGRAM, BID (97/103 MG, MORNING AND EVENIN)
     Route: 065
  5. VALSARTAN [Suspect]
     Active Substance: VALSARTAN
     Indication: Hypertension
     Dosage: 320 MILLIGRAM
     Route: 065
  6. VALSARTAN [Suspect]
     Active Substance: VALSARTAN
     Dosage: 80 MILLIGRAM (DAILY IN THE MORNING / ONE DOSE IN THE MORNING, HALF OF A DOSE IN THE EVENING (1-0-1/2
     Route: 065
  7. VALSARTAN [Suspect]
     Active Substance: VALSARTAN
     Dosage: 80 MILLIGRAM, QD (DAILY IN THE MORNING) (START DATE: DEC 2014, STOP DATE:2015)
     Route: 065
  8. VALSARTAN [Suspect]
     Active Substance: VALSARTAN
     Dosage: 25 MILLIGRAM, QD (START DATE:2015)
     Route: 065
  9. VALSARTAN [Suspect]
     Active Substance: VALSARTAN
     Dosage: UNK 320/25 MG, QD (DAILY IN THE MORNING) STOP DATE: MAY 2016
     Route: 065
     Dates: start: 20150831
  10. VALSARTAN [Suspect]
     Active Substance: VALSARTAN
     Dosage: UNK 320/25 MG, QD (DAILY IN THE MORNING) (START DATE:JUL 2016, STOP DATE:APR 2017)
     Route: 065
  11. VALSARTAN [Suspect]
     Active Substance: VALSARTAN
     Dosage: UNK 320/25 MG, QD (DAILY IN THE MORNING) (START DATE:JUL 2017, STOP DATE: OCT 2017)
     Route: 065
  12. VALSARTAN [Suspect]
     Active Substance: VALSARTAN
     Dosage: UNK 320/25 MG, QD (DAILY IN THE MORNING) (START DATE:JAN 2018, STOP DATE:APR 2018)
     Route: 065
  13. VALSARTAN [Suspect]
     Active Substance: VALSARTAN
     Indication: Hypertension
     Dosage: UNK, QD, (START DATE:OCT 2017, STOP DATE:JAN 2018), 320MG/25MG, QD (DAILY IN THE MORNING)
     Route: 065
  14. VALSARTAN [Suspect]
     Active Substance: VALSARTAN
     Dosage: UNK, QD, (START DATE:APR 2018, STOP DATE:JUL 2018), 320MG/25MG, QD (DAILY IN THE MORNING)
     Route: 065
  15. AMIODARONE [Suspect]
     Active Substance: AMIODARONE
     Indication: Atrial fibrillation
     Dosage: UNK
     Route: 065
  16. SPIRONOLACTONE [Suspect]
     Active Substance: SPIRONOLACTONE
     Indication: Cardiac failure
     Dosage: UNK
     Route: 065
  17. TORASEMIDE HEXAL [Concomitant]
     Indication: Product used for unknown indication
     Dosage: 10 MILLIGRAM (START DATE: DEC 2014)
     Route: 065
  18. FUROSEMIDE [Concomitant]
     Active Substance: FUROSEMIDE
     Indication: Product used for unknown indication
     Dosage: 40 MILLIGRAM, QD (IN THE MORNING (1-0-0)), START DATE: OCT 2019
     Route: 065
  19. FUROSEMIDE [Concomitant]
     Active Substance: FUROSEMIDE
     Dosage: 500 MILLIGRAM
     Route: 065
  20. FUROSEMIDE [Concomitant]
     Active Substance: FUROSEMIDE
     Dosage: UNK, (20)
     Route: 065
  21. FUROSEMIDE [Concomitant]
     Active Substance: FUROSEMIDE
     Dosage: UNK, (20)
     Route: 065
  22. TORSEMIDE [Concomitant]
     Active Substance: TORSEMIDE
     Indication: Product used for unknown indication
     Dosage: 40 MILLIGRAM, QD IN THE MORNING (1-0-0))
     Route: 065
  23. TORSEMIDE [Concomitant]
     Active Substance: TORSEMIDE
     Dosage: 10 MILLIGRAM, BID (ONCE IN THE MORNING, ONCE AT NOON (1-1-0))
     Route: 065
  24. Novalgin [Concomitant]
     Indication: Product used for unknown indication
     Dosage: 500 MILLIGRAM (4X DAILY IF NEEDED)
     Route: 065
  25. HYDROCHLOROTHIAZIDE [Concomitant]
     Active Substance: HYDROCHLOROTHIAZIDE
     Indication: Product used for unknown indication
     Dosage: 2.5 MILLIGRAM, QD (IN THE MORNING (1-0-0)), START DATE: OCT 2014
     Route: 065
  26. TORSEMIDE [Concomitant]
     Active Substance: TORSEMIDE
     Indication: Product used for unknown indication
     Dosage: UNK (ONE DOSE IN THE MORNING, HALF OF A DOSAGE AT NOON (1-1/2-0)) (START DATE:NOV 2014)
     Route: 065
  27. TORSEMIDE [Concomitant]
     Active Substance: TORSEMIDE
     Dosage: 5 MILLIGRAM, QD, (ONCE DAILY IN THE MORNING (1-0-0))
     Route: 065
  28. TORSEMIDE [Concomitant]
     Active Substance: TORSEMIDE
     Dosage: 5 MILLIGRAM, QD, (ONCE DAILY IN THE MORNING (1-0-0))
     Route: 065
  29. DEXAMETHASONE [Concomitant]
     Active Substance: DEXAMETHASONE
     Indication: Product used for unknown indication
     Dosage: 4 MILLIGRAM (START DATE: JUL 2015)
     Route: 065
  30. NASIC CUR [Concomitant]
     Indication: Product used for unknown indication
     Dosage: UNK AS NEEDED (NOSE), START DATE: NOV 2019
     Route: 065
  31. BISOPROLOL [Concomitant]
     Active Substance: BISOPROLOL\BISOPROLOL FUMARATE
     Indication: Product used for unknown indication
     Dosage: UNK, BID, 5, BID (IN THE MORNING, ONCE IN THE EVENING (1-0-1)), START DATE: APR 2015
     Route: 065
  32. VALSARTAN [Concomitant]
     Active Substance: VALSARTAN
     Indication: Product used for unknown indication
     Dosage: UNK, QD, (320/25 MG, IN MORNING)
     Route: 065
  33. VALSARTAN [Concomitant]
     Active Substance: VALSARTAN
     Dosage: UNK, QD,(320/25 MG, IN MORNING)
     Route: 065
  34. DIPYRONE [Concomitant]
     Active Substance: DIPYRONE
     Indication: Product used for unknown indication
     Dosage: 4 DOSAGE FORM, QD (500 MG / 30 GTT)
     Route: 065
  35. VERAPAMIL HYDROCHLORIDE [Concomitant]
     Active Substance: VERAPAMIL HYDROCHLORIDE
     Indication: Product used for unknown indication
     Dosage: 120 MILLIGRAM, TID (ONCE IN THE MORNING, ONCE AT NOON, ONCE IN THE EVENING (1-1-1))
     Route: 065
  36. ALLOPURINOL [Concomitant]
     Active Substance: ALLOPURINOL
     Indication: Product used for unknown indication
     Dosage: 300 MILLIGRAM, QD (EVENING)
     Route: 065
  37. NITRENDIPINE [Concomitant]
     Active Substance: NITRENDIPINE
     Indication: Product used for unknown indication
     Dosage: UNK (START DATE:OCT 2019)
     Route: 060
  38. PIROXICAM [Concomitant]
     Active Substance: PIROXICAM
     Indication: Product used for unknown indication
     Dosage: 20 MILLIGRAM (START DATE:JUL 2015)
     Route: 065
  39. OMEPRAZOLE [Concomitant]
     Active Substance: OMEPRAZOLE
     Indication: Product used for unknown indication
     Dosage: 20 MILLIGRAM, QD (MORNING)
     Route: 065
  40. BISOPROLOL [Concomitant]
     Active Substance: BISOPROLOL\BISOPROLOL FUMARATE
     Indication: Product used for unknown indication
     Dosage: UNK, QD (MORNING)
     Route: 065
  41. BISOPROLOL [Concomitant]
     Active Substance: BISOPROLOL\BISOPROLOL FUMARATE
     Dosage: 5 MILLIGRAM (1 DOSAGE IN THE MORNING, HALF OF A DOSAGE IN THE EVENING (1-0-1/2))
     Route: 065
  42. BISOPROLOL [Concomitant]
     Active Substance: BISOPROLOL\BISOPROLOL FUMARATE
     Dosage: UNK, BID (1.5 OF A DOSAGE IN THE MORNING, 1 DOSAGE IN THE EVENING (1.5-0-1)
     Route: 065
  43. BISOPROLOL [Concomitant]
     Active Substance: BISOPROLOL\BISOPROLOL FUMARATE
     Dosage: 5 MILLIGRAM, BID (FILM-COATED TABLETS, MORNING AND EVENING))
     Route: 048
  44. BISOPROLOL [Concomitant]
     Active Substance: BISOPROLOL\BISOPROLOL FUMARATE
     Dosage: UNK, QD (MORNING)
     Route: 065
  45. BISOPROLOL [Concomitant]
     Active Substance: BISOPROLOL\BISOPROLOL FUMARATE
     Dosage: 2.5 MILLIGRAM (1.5 OF A DOSAGE IN THE MORNING, 1 DOSAGE IN THE EVENING (1.5-0-1))
     Route: 065
  46. BISOPROLOL [Concomitant]
     Active Substance: BISOPROLOL\BISOPROLOL FUMARATE
     Dosage: UNK, QD (1.5 X 2.5 MG, MORNING)
     Route: 065
  47. BISOPROLOL [Concomitant]
     Active Substance: BISOPROLOL\BISOPROLOL FUMARATE
     Dosage: UNK UNK, QD (7.5)
     Route: 065
  48. BISOPROLOL [Concomitant]
     Active Substance: BISOPROLOL\BISOPROLOL FUMARATE
     Dosage: UNK UNK, QD (7.5)
     Route: 065
  49. BISOPROLOL [Concomitant]
     Active Substance: BISOPROLOL\BISOPROLOL FUMARATE
     Dosage: UNK BID (1.5 OF A DOSAGE IN THE MORNING, 1 DOSAGE IN THE EVENING (1.5-0-1)
     Route: 065
  50. BISOPROLOL [Concomitant]
     Active Substance: BISOPROLOL\BISOPROLOL FUMARATE
     Dosage: 2 DOSAGE FORM, BID (TWICE IN THE MORNING, TWICE IN THE EVENING (2-0-2)
     Route: 065
  51. BISOPROLOL [Concomitant]
     Active Substance: BISOPROLOL\BISOPROLOL FUMARATE
     Dosage: 2.5 MILLIGRAM, BID (ONCE IN THE MORNING, ONCE IN THE EVENING (1-0-1))
     Route: 048
  52. BISOPROLOL [Concomitant]
     Active Substance: BISOPROLOL\BISOPROLOL FUMARATE
     Dosage: UNK, QD (1.5X 2.5 MG, MORNING)
     Route: 065
  53. BISOPROLOL [Concomitant]
     Active Substance: BISOPROLOL\BISOPROLOL FUMARATE
     Dosage: 10 MILLIGRAM, QD (5 MG, BID (FILM-COATED TABLETS, MORNING AND EVENING))
     Route: 048
  54. BISOPROLOL [Concomitant]
     Active Substance: BISOPROLOL\BISOPROLOL FUMARATE
     Dosage: UNK, QD (MORNING)
     Route: 065
  55. BISOPROLOL [Concomitant]
     Active Substance: BISOPROLOL\BISOPROLOL FUMARATE
     Dosage: UNK, QD (MORNING)
     Route: 065
  56. BISOPROLOL [Concomitant]
     Active Substance: BISOPROLOL\BISOPROLOL FUMARATE
     Dosage: UNK, QD (1.5 X 2.5 MG, MORNING)
     Route: 065
  57. LASIX [Concomitant]
     Active Substance: FUROSEMIDE
     Indication: Product used for unknown indication
     Dosage: 20 MILLIGRAM (START AND STOP DATE: DEC2019)
     Route: 042
  58. LASIX [Concomitant]
     Active Substance: FUROSEMIDE
     Dosage: 40 MILLIGRAM (START AND STOP DATE: DEC2019) (ONCE DOSE IN THE MORNING, HALF OF A DOSE AT NOON (1-1/2
     Route: 042
  59. CANDESARTAN CILEXETIL [Concomitant]
     Active Substance: CANDESARTAN CILEXETIL
     Indication: Hypertension
     Dosage: UNK
     Route: 065
  60. CANDESARTAN CILEXETIL [Concomitant]
     Active Substance: CANDESARTAN CILEXETIL
     Dosage: UNK
     Route: 065
  61. CANDESARTAN CILEXETIL [Concomitant]
     Active Substance: CANDESARTAN CILEXETIL
     Dosage: UNK
     Route: 065
  62. Bepanthen [Concomitant]
     Indication: Product used for unknown indication
     Dosage: UNK (WOUND AND HEALING, AS NEEDED)
     Route: 065
  63. Bepanthen [Concomitant]
     Dosage: UNK (WOUND AND HEALING, AS NEEDED)
     Route: 065
  64. MEPIVACAINE HYDROCHLORIDE [Concomitant]
     Active Substance: MEPIVACAINE HYDROCHLORIDE
     Indication: Local anaesthesia
     Dosage: UNK (15 ML WITH 1%)
     Route: 065
     Dates: start: 20191218, end: 20191218
  65. MEPIVACAINE HYDROCHLORIDE [Concomitant]
     Active Substance: MEPIVACAINE HYDROCHLORIDE
     Indication: Biopsy bone marrow
     Dosage: UNK
     Route: 065
     Dates: start: 20150220, end: 20150220
  66. Novodigal Mite [Concomitant]
     Indication: Product used for unknown indication
     Dosage: UNK UNK, QD 0.1 (ONCE IN THE MORNING (1-0-0)), START DATE: OCT 2014
     Route: 065
  67. PROPOFOL [Concomitant]
     Active Substance: PROPOFOL
     Indication: Biopsy bone marrow
     Dosage: 2 PERCENT
     Route: 065
     Dates: start: 20150220, end: 20150220
  68. PROPOFOL [Concomitant]
     Active Substance: PROPOFOL
     Indication: Endoscopy
     Dosage: 280 MILLIGRAM
     Route: 065
     Dates: start: 20191213, end: 20191213
  69. PROPOFOL [Concomitant]
     Active Substance: PROPOFOL
     Indication: Anaesthesia
     Dosage: 310 MILLIGRAM
     Route: 065
     Dates: start: 20191218, end: 20191218
  70. HEPARIN [Concomitant]
     Active Substance: HEPARIN SODIUM
     Indication: Biopsy bone marrow
     Dosage: UNK (15000 IU + 10000 IU)
     Route: 042
     Dates: start: 20150220, end: 20150220
  71. HYDROCHLOROTHIAZIDE [Concomitant]
     Active Substance: HYDROCHLOROTHIAZIDE
     Indication: Product used for unknown indication
     Dosage: 2.5 MILLIGRAM, BID (ONCE IN THE MORNING, ONCE IN THE EVENING (1-0-1))
     Route: 065
  72. CANDESARTAN ABZ [Concomitant]
     Indication: Hypertension
     Dosage: 32 MILLIGRAM, QD (ONCE DAILY IN THE MORNING (1-0-0))
     Route: 065
  73. BISOPROLOL FUMARATE [Concomitant]
     Active Substance: BISOPROLOL FUMARATE
     Indication: Product used for unknown indication
     Dosage: 5 MILLIGRAM, BID (ONCE IN THE MORNING, ONCE IN THE EVENING (1-0-1))
     Route: 048
  74. RAMIPRIL [Concomitant]
     Active Substance: RAMIPRIL
     Indication: Product used for unknown indication
     Dosage: 5 MILLIGRAM (HALF OF A DOSAGE IN THE MORNING AND IN THE EVENING (0.5-0-0.5)), START DATE: OCT 2014
     Route: 065
  75. FENTANYL [Concomitant]
     Active Substance: FENTANYL\FENTANYL CITRATE
     Indication: Product used for unknown indication
     Dosage: 25 MICROGRAM
     Route: 065
     Dates: start: 20150220, end: 20150220
  76. PANTOPRAZOLE [Concomitant]
     Active Substance: PANTOPRAZOLE
     Indication: Product used for unknown indication
     Dosage: 20 MILLIGRAM, QD
     Route: 065
  77. OXYGEN [Concomitant]
     Active Substance: OXYGEN
     Indication: Biopsy bone marrow
     Dosage: UNK (2 L UP TO 6 L)
     Route: 065
     Dates: start: 20191218, end: 20191218
  78. ZOPICLONE [Concomitant]
     Active Substance: ZOPICLONE
     Indication: Product used for unknown indication
     Dosage: 7.5 MILLIGRAM, PRN (AS NEEDED)
     Route: 048
  79. AJMALINE [Concomitant]
     Active Substance: AJMALINE
     Indication: Product used for unknown indication
     Dosage: 80 MILLIGRAM
     Route: 065
     Dates: start: 20150220, end: 20150220
  80. RAMIPRIL [Concomitant]
     Active Substance: RAMIPRIL
     Indication: Product used for unknown indication
     Dosage: 2.5 MILLIGRAM, QD (ONCE DAILY IN THE MORNING (1-0-0))
     Route: 065
  81. JELLIPROCT [Concomitant]
     Indication: Product used for unknown indication
     Dosage: UNK (START DATE: JAN 2019)
     Route: 065
  82. BISOPROLOL FUMARATE [Concomitant]
     Active Substance: BISOPROLOL FUMARATE
     Indication: Product used for unknown indication
     Dosage: 5 MILLIGRAM, QD (MORNING)
     Route: 065
  83. BISOPROLOL FUMARATE [Concomitant]
     Active Substance: BISOPROLOL FUMARATE
     Dosage: UNK UNK, QD (? X 5 MG)
     Route: 065
  84. BISOPROLOL FUMARATE [Concomitant]
     Active Substance: BISOPROLOL FUMARATE
     Dosage: UNK UNK, QD (? X 5 MG)
     Route: 065
  85. BISOPROLOL FUMARATE [Concomitant]
     Active Substance: BISOPROLOL FUMARATE
     Dosage: UNK UNK, QD (? X 5 MG)
     Route: 065
  86. AMIODARONE [Concomitant]
     Active Substance: AMIODARONE
     Indication: Product used for unknown indication
     Dosage: UNK (START DATE:NOV 2014) (200)
     Route: 065

REACTIONS (73)
  - Gastrointestinal tract adenoma [Unknown]
  - Gastrointestinal neoplasm [Unknown]
  - Small intestine adenocarcinoma [Unknown]
  - Adenoma benign [Unknown]
  - Gastrointestinal dysplasia [Unknown]
  - Developmental hip dysplasia [Unknown]
  - Myocardial necrosis marker increased [Unknown]
  - Pulmonary congestion [Unknown]
  - Respiratory disorder [Unknown]
  - Dilated cardiomyopathy [Unknown]
  - Multiple sclerosis [Unknown]
  - Sleep disorder [Unknown]
  - Bundle branch block left [Unknown]
  - Palpitations [Unknown]
  - Myocardial infarction [Unknown]
  - Obstructive sleep apnoea syndrome [Unknown]
  - Ventricular enlargement [Unknown]
  - Quality of life decreased [Unknown]
  - Ventricular extrasystoles [Unknown]
  - Atrial fibrillation [Unknown]
  - Insomnia [Unknown]
  - Somnolence [Unknown]
  - Myocarditis [Unknown]
  - General physical health deterioration [Unknown]
  - Left ventricular dysfunction [Unknown]
  - Cardiovascular disorder [Unknown]
  - Cardiac dysfunction [Unknown]
  - Goitre [Unknown]
  - Dyspnoea at rest [Recovered/Resolved]
  - Haemorrhoidal haemorrhage [Unknown]
  - Waldenstrom^s macroglobulinaemia [Unknown]
  - Middle insomnia [Unknown]
  - Hyperthyroidism [Unknown]
  - Escherichia bacteraemia [Unknown]
  - Aortic valve incompetence [Unknown]
  - Tricuspid valve incompetence [Unknown]
  - Gastritis erosive [Unknown]
  - Cholecystitis chronic [Unknown]
  - Hypothyroidism [Unknown]
  - Sphincter of Oddi dysfunction [Unknown]
  - Ascites [Unknown]
  - Rheumatoid arthritis [Unknown]
  - Acute kidney injury [Unknown]
  - Mitral valve incompetence [Unknown]
  - Deafness [Unknown]
  - Rectal neoplasm [Unknown]
  - Colon neoplasm [Unknown]
  - Discouragement [Unknown]
  - Pleural effusion [Unknown]
  - Emotional distress [Unknown]
  - Metabolic syndrome [Unknown]
  - Arthralgia [Unknown]
  - Ulcer [Recovered/Resolved]
  - Urinary tract infection [Unknown]
  - Gait disturbance [Unknown]
  - Inguinal hernia [Unknown]
  - Panic attack [Unknown]
  - Gammopathy [Unknown]
  - Body fat disorder [Unknown]
  - Dyspnoea exertional [Unknown]
  - Gout [Unknown]
  - Motor dysfunction [Unknown]
  - Memory impairment [Unknown]
  - Sinonasal obstruction [Unknown]
  - Tracheal disorder [Unknown]
  - Urinary incontinence [Unknown]
  - Gastrooesophageal reflux disease [Unknown]
  - Depression [Unknown]
  - Pruritus [Unknown]
  - Cough [Unknown]
  - Hypotension [Unknown]
  - Product use in unapproved indication [Unknown]
  - Medication error [Unknown]
